FAERS Safety Report 12594406 (Version 1)
Quarter: 2016Q3

REPORT INFORMATION
  Report Type: Report from Study
  Country: US (occurrence: US)
  Receive Date: 20160726
  Receipt Date: 20160726
  Transmission Date: 20161109
  Serious: Yes (Other)
  Sender: FDA-Public Use
  Company Number: US-TEVA-675459USA

PATIENT
  Age: 48 Year
  Sex: Female

DRUGS (1)
  1. COPAXONE [Suspect]
     Active Substance: GLATIRAMER ACETATE
     Indication: MULTIPLE SCLEROSIS
     Route: 058
     Dates: start: 20160623

REACTIONS (7)
  - Pneumonia [Unknown]
  - Pruritus generalised [Unknown]
  - Seizure [Recovered/Resolved]
  - Lip swelling [Unknown]
  - Respiratory arrest [Recovered/Resolved]
  - Anaphylactic reaction [Unknown]
  - Cyanosis [Unknown]

NARRATIVE: CASE EVENT DATE: 20160707
